FAERS Safety Report 9495653 (Version 1)
Quarter: 2013Q3

REPORT INFORMATION
  Report Type: Report from Study
  Country: US (occurrence: US)
  Receive Date: 20130903
  Receipt Date: 20130903
  Transmission Date: 20140515
  Serious: Yes (Other)
  Sender: FDA-Public Use
  Company Number: US-BAYER-2013-105874

PATIENT
  Age: 31 Year
  Sex: Male

DRUGS (1)
  1. ASPIRIN [Suspect]
     Indication: THROMBOSIS PROPHYLAXIS
     Dosage: DAILY DOSE OF 325 MG
     Route: 048

REACTIONS (1)
  - Deep vein thrombosis postoperative [Recovered/Resolved]
